FAERS Safety Report 20025836 (Version 3)
Quarter: 2022Q1

REPORT INFORMATION
  Report Type: Report from Study
  Country: US (occurrence: US)
  Receive Date: 20211102
  Receipt Date: 20220203
  Transmission Date: 20220423
  Serious: Yes (Other)
  Sender: FDA-Public Use
  Company Number: US-PFIZER INC-202101028256

PATIENT
  Age: 67 Year
  Sex: Female

DRUGS (2)
  1. IBRANCE [Suspect]
     Active Substance: PALBOCICLIB
     Indication: Breast cancer female
     Dosage: 125 MG, CYCLIC (125 MG DAILY TIMES 21 DAYS ON THEN 7 DAYS OFF)
     Route: 048
     Dates: start: 20210726
  2. FASLODEX [Concomitant]
     Active Substance: FULVESTRANT
     Dosage: UNK
     Dates: start: 20210824, end: 20210824

REACTIONS (23)
  - Spinal fracture [Unknown]
  - Rib fracture [Unknown]
  - Skin discolouration [Unknown]
  - Nail discolouration [Unknown]
  - Fatigue [Unknown]
  - Vomiting [Recovered/Resolved]
  - Nausea [Recovered/Resolved]
  - Flatulence [Recovered/Resolved]
  - Back pain [Unknown]
  - Malaise [Unknown]
  - Product dose omission issue [Unknown]
  - Abdominal distension [Recovered/Resolved]
  - Dyspepsia [Recovered/Resolved]
  - Gastrooesophageal reflux disease [Recovered/Resolved]
  - Abdominal pain upper [Recovered/Resolved]
  - Memory impairment [Unknown]
  - Alopecia [Unknown]
  - Skin plaque [Unknown]
  - Neoplasm progression [Unknown]
  - Gait disturbance [Unknown]
  - Breast discolouration [Unknown]
  - Chest pain [Unknown]
  - Neck pain [Unknown]

NARRATIVE: CASE EVENT DATE: 20210101
